FAERS Safety Report 11403558 (Version 1)
Quarter: 2015Q3

REPORT INFORMATION
  Report Type: Spontaneous
  Country: US (occurrence: US)
  Receive Date: 20150821
  Receipt Date: 20150821
  Transmission Date: 20151125
  Serious: No
  Sender: FDA-Public Use
  Company Number: US-TEVA-509789USA

PATIENT

DRUGS (1)
  1. FLUOXETINE [Suspect]
     Active Substance: FLUOXETINE\FLUOXETINE HYDROCHLORIDE
     Indication: HALLUCINATION
     Dosage: DIFFERENT DOSAGES HAVE BEEN TRIED, RANGING FROM 15-30 MG
     Route: 048

REACTIONS (1)
  - Hallucination [Unknown]
